FAERS Safety Report 4299521-4 (Version None)
Quarter: 2004Q1

REPORT INFORMATION
  Report Type: 
  Country: None (occurrence: None)
  Receive Date: 20040219
  Receipt Date: 20040121
  Transmission Date: 20041129
  Serious: Yes (Disabling)
  Sender: FDA-Public Use
  Company Number: US-BRISTOL-MYERS SQUIBB COMPANY-12484754

PATIENT
  Age: 50 Year
  Sex: Female
  Weight: 70 kg

DRUGS (7)
  1. CARBOPLATIN [Suspect]
     Indication: BREAST CANCER
     Route: 042
     Dates: start: 20031223, end: 20031223
  2. ACTONEL [Concomitant]
  3. COUMADIN [Concomitant]
  4. BENADRYL [Concomitant]
     Dosage: PRE-TREATMENT MEDICATION
     Route: 042
  5. ZOFRAN [Concomitant]
     Dosage: PRE-TREATMENT MEDICATION
     Route: 042
  6. DECADRON [Concomitant]
     Dosage: PRE-TREATMENT MEDICATION
     Route: 042
  7. TYLENOL (CAPLET) [Concomitant]
     Dosage: PRE-TREATMENT MEDICATION
     Route: 048

REACTIONS (1)
  - CYSTITIS INTERSTITIAL [None]
